FAERS Safety Report 16232867 (Version 1)
Quarter: 2019Q2

REPORT INFORMATION
  Report Type: Spontaneous
  Country: AR (occurrence: AR)
  Receive Date: 20190424
  Receipt Date: 20190424
  Transmission Date: 20190711
  Serious: Yes (Hospitalization, Other)
  Sender: FDA-Public Use
  Company Number: AR-BAYER-2019-078834

PATIENT
  Age: 59 Year
  Sex: Male

DRUGS (1)
  1. NEXAVAR [Suspect]
     Active Substance: SORAFENIB
     Indication: HEPATOCELLULAR CARCINOMA
     Dosage: 400 MG, BID
     Dates: start: 20190213, end: 20190223

REACTIONS (7)
  - Pyrexia [Unknown]
  - Mucosal disorder [Unknown]
  - Abdominal discomfort [Unknown]
  - Granulomatous lymphadenitis [None]
  - Dermatitis exfoliative generalised [Unknown]
  - Tumour necrosis [None]
  - Rash [Unknown]

NARRATIVE: CASE EVENT DATE: 20190219
